FAERS Safety Report 22005785 (Version 1)
Quarter: 2023Q1

REPORT INFORMATION
  Report Type: Spontaneous
  Country: US (occurrence: US)
  Receive Date: 20230217
  Receipt Date: 20230217
  Transmission Date: 20230417
  Serious: Yes (Hospitalization)
  Sender: FDA-Public Use
  Company Number: US-JNJFOC-20230223281

PATIENT
  Age: 67 Year
  Sex: Male

DRUGS (5)
  1. SPRAVATO [Suspect]
     Active Substance: ESKETAMINE
     Indication: Depression
     Dosage: ^56 MG, 4 TOTAL DOSES^?RECENT DOSE (84 MG) ON 13-FEB-2023
     Dates: start: 20230130, end: 20230208
  2. SPRAVATO [Suspect]
     Active Substance: ESKETAMINE
     Indication: Suicidal ideation
  3. FLUOXETINE [Concomitant]
     Active Substance: FLUOXETINE HYDROCHLORIDE
  4. SEROQUEL [Concomitant]
     Active Substance: QUETIAPINE FUMARATE
  5. BUPROPION [Concomitant]
     Active Substance: BUPROPION
     Dosage: IMMEDIATE RELEASE

REACTIONS (4)
  - Anger [Recovered/Resolved]
  - Feeling abnormal [Recovered/Resolved]
  - Dissociation [Unknown]
  - Agitation [Unknown]

NARRATIVE: CASE EVENT DATE: 20230208
